FAERS Safety Report 12782509 (Version 1)
Quarter: 2016Q3

REPORT INFORMATION
  Report Type: Spontaneous
  Country: US (occurrence: US)
  Receive Date: 20160927
  Receipt Date: 20160927
  Transmission Date: 20161109
  Serious: No
  Sender: FDA-Public Use
  Company Number: US-RECORDATI RARE DISEASES-US-R13005-16-00023

PATIENT
  Sex: Female

DRUGS (1)
  1. PANHEMATIN [Suspect]
     Active Substance: HEMIN
     Indication: PORPHYRIA ACUTE
     Route: 042

REACTIONS (6)
  - Infusion site warmth [Unknown]
  - Off label use [Unknown]
  - Unevaluable event [Unknown]
  - Infusion site pain [Unknown]
  - Infusion site induration [Unknown]
  - Patient dissatisfaction with treatment [Unknown]
